FAERS Safety Report 5924191-6 (Version None)
Quarter: 2008Q4

REPORT INFORMATION
  Report Type: 
  Country: None (occurrence: None)
  Receive Date: 20081020
  Receipt Date: 20081008
  Transmission Date: 20090506
  Serious: Yes (Hospitalization)
  Sender: FDA-Public Use
  Company Number: US-ELI_LILLY_AND_COMPANY-US200805000624

PATIENT
  Sex: Male

DRUGS (22)
  1. FORTEO [Suspect]
     Indication: OSTEOPOROSIS
     Dosage: UNK, UNK
     Dates: start: 20070401
  2. COMBIVENT [Concomitant]
     Route: 055
  3. SINGULAIR [Concomitant]
  4. TEGRETOL [Concomitant]
  5. SYNTHROID [Concomitant]
  6. PRILOSEC [Concomitant]
  7. PLAVIX [Concomitant]
     Dates: end: 20081007
  8. CARDIZEM CD [Concomitant]
     Dosage: 240 MG, UNK
  9. ZOCOR [Concomitant]
     Dosage: 40 MG, UNK
  10. LASIX [Concomitant]
  11. ADVAIR DISKUS 100/50 [Concomitant]
     Route: 055
  12. NEURONTIN [Concomitant]
  13. ZOLOFT [Concomitant]
  14. PREDNISONE [Concomitant]
  15. NASONEX [Concomitant]
  16. DUONEB [Concomitant]
     Route: 055
  17. MULTI-VITAMIN [Concomitant]
  18. POTASSIUM CHLORIDE [Concomitant]
  19. MAGNESIUM SULFATE [Concomitant]
  20. CALCIUM [Concomitant]
  21. ASPIRIN [Concomitant]
     Dosage: BABY ASPIRIN
  22. KLOR-CON [Concomitant]
     Dosage: 10 MEQ, UNK

REACTIONS (3)
  - ASTHMA [None]
  - CORONARY ARTERY OCCLUSION [None]
  - HEART RATE INCREASED [None]
